FAERS Safety Report 12255090 (Version 1)
Quarter: 2016Q2

REPORT INFORMATION
  Report Type: Spontaneous
  Country: FR (occurrence: FR)
  Receive Date: 20160411
  Receipt Date: 20160411
  Transmission Date: 20160815
  Serious: Yes (Other)
  Sender: FDA-Public Use
  Company Number: FR-GE HEALTHCARE MEDICAL DIAGNOSTICS-VISP-PR-1604S-0180

PATIENT
  Age: 71 Year
  Sex: Male

DRUGS (8)
  1. REOPRO [Suspect]
     Active Substance: ABCIXIMAB
     Indication: ACUTE CORONARY SYNDROME
     Route: 042
     Dates: start: 20160223, end: 20160223
  2. RISORDAN [Concomitant]
     Active Substance: ISOSORBIDE DINITRATE
  3. HEPARINE SODIQUE PANPHARMA [Suspect]
     Active Substance: HEPARIN SODIUM
     Indication: ACUTE CORONARY SYNDROME
     Dosage: 4000 UI IN BOLUS, THEN 500 UI/H
     Route: 042
     Dates: start: 20160223, end: 20160223
  4. VISIPAQUE [Suspect]
     Active Substance: IODIXANOL
     Indication: ACUTE CORONARY SYNDROME
     Dosage: DOSE NOT REPORTED
     Route: 042
     Dates: start: 20160223, end: 20160223
  5. VISIPAQUE [Suspect]
     Active Substance: IODIXANOL
     Indication: DIAGNOSTIC PROCEDURE
  6. BRILIQUE [Concomitant]
     Active Substance: TICAGRELOR
  7. KENZEN [Concomitant]
     Active Substance: CANDESARTAN
  8. ASPIRINE [Concomitant]
     Active Substance: ASPIRIN
     Route: 042

REACTIONS (3)
  - Thrombocytopenia [Recovered/Resolved]
  - Pruritus [Recovered/Resolved]
  - Rash [Recovered/Resolved]

NARRATIVE: CASE EVENT DATE: 20160223
